FAERS Safety Report 8021860-1 (Version None)
Quarter: 2012Q1

REPORT INFORMATION
  Report Type: 
  Country: None (occurrence: None)
  Receive Date: 20120104
  Receipt Date: 20111229
  Transmission Date: 20120608
  Serious: No
  Sender: FDA-Public Use
  Company Number: US-BAYER-2011-124456

PATIENT
  Sex: Female

DRUGS (1)
  1. MIRENA [Suspect]
     Indication: CONTRACEPTION
     Dosage: 20 MCG/24HR, CONT
     Route: 015
     Dates: start: 20111001

REACTIONS (7)
  - ABDOMINAL PAIN [None]
  - DEPRESSION [None]
  - PALPITATIONS [None]
  - ANXIETY [None]
  - MOOD SWINGS [None]
  - DYSPAREUNIA [None]
  - PANIC ATTACK [None]
